FAERS Safety Report 11458591 (Version 6)
Quarter: 2015Q4

REPORT INFORMATION
  Report Type: Report from Study
  Country: DE (occurrence: DE)
  Receive Date: 20150904
  Receipt Date: 20151106
  Transmission Date: 20160304
  Serious: Yes (Other)
  Sender: FDA-Public Use
  Company Number: DE-SA-2015SA133320

PATIENT
  Age: 25 Year
  Sex: Female
  Weight: 66 kg

DRUGS (5)
  1. EBASTINE [Concomitant]
     Active Substance: EBASTINE
     Indication: SEASONAL ALLERGY
     Route: 048
  2. LEMTRADA [Suspect]
     Active Substance: ALEMTUZUMAB
     Indication: MULTIPLE SCLEROSIS
     Route: 041
     Dates: start: 20141028, end: 20141031
  3. LEMTRADA [Suspect]
     Active Substance: ALEMTUZUMAB
     Indication: MULTIPLE SCLEROSIS
     Route: 041
     Dates: start: 20151026, end: 20151028
  4. EBASTINE [Concomitant]
     Active Substance: EBASTINE
     Indication: HOUSE DUST ALLERGY
     Route: 048
  5. VITAMIN D [Concomitant]
     Active Substance: CHOLECALCIFEROL
     Indication: VITAMIN D DEFICIENCY
     Route: 048
     Dates: start: 2013

REACTIONS (6)
  - Vulvovaginal mycotic infection [Recovered/Resolved]
  - Urine analysis abnormal [Unknown]
  - Vulvovaginal candidiasis [Unknown]
  - Sinusitis [Recovered/Resolved]
  - Hypothyroidism [Not Recovered/Not Resolved]
  - Respiratory tract infection [Recovered/Resolved]

NARRATIVE: CASE EVENT DATE: 20150826
